FAERS Safety Report 12099123 (Version 1)
Quarter: 2016Q1

REPORT INFORMATION
  Report Type: Spontaneous
  Country: US (occurrence: US)
  Receive Date: 20160222
  Receipt Date: 20160222
  Transmission Date: 20160526
  Serious: No
  Sender: FDA-Public Use
  Company Number: US-TEVA-553874USA

PATIENT
  Age: 39 Year
  Sex: Female
  Weight: 72.56 kg

DRUGS (1)
  1. CETIRIZINE W/PSEUDOEPHEDRINE [Suspect]
     Active Substance: CETIRIZINE HYDROCHLORIDE\PSEUDOEPHEDRINE HYDROCHLORIDE
     Indication: SINUS HEADACHE
     Dosage: 2 TABLETS SINGLE 5 MG/120 MG
     Route: 048
     Dates: start: 20150402, end: 20150402

REACTIONS (5)
  - Abdominal discomfort [Unknown]
  - Extra dose administered [Unknown]
  - Burning sensation [Unknown]
  - Drug ineffective [Unknown]
  - Dizziness [Unknown]

NARRATIVE: CASE EVENT DATE: 20150402
